FAERS Safety Report 9270110 (Version 2)
Quarter: 2013Q2

REPORT INFORMATION
  Report Type: Spontaneous
  Country: PH (occurrence: PH)
  Receive Date: 20130503
  Receipt Date: 20130514
  Transmission Date: 20140414
  Serious: Yes (Death, Other)
  Sender: FDA-Public Use
  Company Number: PH-009507513-1305PHL000394

PATIENT
  Age: 52 Year
  Sex: Male

DRUGS (4)
  1. COZAAR [Suspect]
     Indication: BLOOD PRESSURE FLUCTUATION
     Dosage: 10 MG, QD MORE THAN 5 YEARS
     Route: 048
  2. COZAAR [Suspect]
     Indication: ROUTINE HEALTH MAINTENANCE
  3. ZIMERZ [Concomitant]
     Indication: ROUTINE HEALTH MAINTENANCE
  4. ASPIRIN [Concomitant]
     Indication: ROUTINE HEALTH MAINTENANCE

REACTIONS (2)
  - Cerebrovascular accident [Fatal]
  - Blood pressure increased [Fatal]
